FAERS Safety Report 18466709 (Version 1)
Quarter: 2020Q4

REPORT INFORMATION
  Report Type: Other
  Country: SG (occurrence: SG)
  Receive Date: 20201105
  Receipt Date: 20201105
  Transmission Date: 20210114
  Serious: Yes (Death)
  Sender: FDA-Public Use
  Company Number: SG-B.BRAUN MEDICAL INC.-2093612

PATIENT
  Age: 62 Year
  Sex: Male

DRUGS (2)
  1. SODIUM CHLORIDE INJECTION USP 0264-7800-09 [Suspect]
     Active Substance: SODIUM CHLORIDE
  2. ADRENALINE [Concomitant]
     Active Substance: EPINEPHRINE
     Route: 042

REACTIONS (1)
  - Drug ineffective [None]
